FAERS Safety Report 4801169-7 (Version None)
Quarter: 2005Q4

REPORT INFORMATION
  Report Type: 
  Country: None (occurrence: None)
  Receive Date: 20051012
  Receipt Date: 20051005
  Transmission Date: 20060501
  Serious: Yes (Other)
  Sender: FDA-Public Use
  Company Number: 2005-UK-01960UK

PATIENT
  Age: 49 Year
  Sex: Female

DRUGS (9)
  1. MORPHINE [Suspect]
     Indication: GENERAL ANAESTHESIA
  2. PROPOFOL [Suspect]
     Indication: GENERAL ANAESTHESIA
     Dosage: IV
     Route: 042
  3. CARBOPLATIN [Suspect]
     Indication: CHEMOTHERAPY
  4. CISPLATIN [Suspect]
     Indication: CHEMOTHERAPY
  5. ETOPOSIDE [Suspect]
     Indication: CHEMOTHERAPY
  6. FENTANYL [Suspect]
     Indication: GENERAL ANAESTHESIA
  7. GEMCITABINE (GEMCITABINE) [Suspect]
     Indication: CHEMOTHERAPY
  8. TAXOL [Suspect]
     Indication: CHEMOTHERAPY
  9. PROPRANOLOL [Concomitant]

REACTIONS (5)
  - DRUG INTERACTION [None]
  - ENCEPHALOPATHY [None]
  - GRAND MAL CONVULSION [None]
  - HEADACHE [None]
  - VISUAL DISTURBANCE [None]
